FAERS Safety Report 4879340-8 (Version None)
Quarter: 2006Q1

REPORT INFORMATION
  Report Type: 
  Country: None (occurrence: None)
  Receive Date: 20060112
  Receipt Date: 20040422
  Transmission Date: 20060701
  Serious: Yes (Hospitalization)
  Sender: FDA-Public Use
  Company Number: US-MERCK-0404USA02012

PATIENT
  Age: 48 Year
  Sex: Male
  Weight: 116 kg

DRUGS (8)
  1. ZOCOR [Suspect]
     Indication: BLOOD CHOLESTEROL INCREASED
     Route: 048
     Dates: start: 20010626, end: 20011213
  2. ZOCOR [Suspect]
     Route: 048
     Dates: start: 20020723, end: 20031026
  3. RANITIDINE HYDROCHLORIDE [Concomitant]
     Route: 048
  4. IBUPROFEN [Concomitant]
     Route: 048
  5. INSULIN HUMAN, ISOPHANE [Concomitant]
     Indication: DIABETES MELLITUS
     Route: 058
  6. INSULIN HUMAN, ISOPHANE [Concomitant]
     Route: 058
  7. FOSINOPRIL SODIUM [Concomitant]
     Indication: HYPERTENSION
     Route: 048
  8. ZOCOR [Suspect]
     Route: 048
     Dates: start: 20000212, end: 20010123

REACTIONS (6)
  - DRUG ADMINISTRATION ERROR [None]
  - EYE DISORDER [None]
  - NASOPHARYNGITIS [None]
  - RHABDOMYOLYSIS [None]
  - SKIN ODOUR ABNORMAL [None]
  - VIRAL INFECTION [None]
